FAERS Safety Report 6680876-8 (Version None)
Quarter: 2010Q2

REPORT INFORMATION
  Report Type: 
  Country: None (occurrence: None)
  Receive Date: 20100413
  Receipt Date: 20100413
  Transmission Date: 20101027
  Serious: Yes (Death)
  Sender: FDA-Public Use
  Company Number: None

PATIENT
  Age: 3 Year
  Sex: Male
  Weight: 14 kg

DRUGS (2)
  1. AVASTIN [Suspect]
     Indication: EPENDYMOMA
     Dosage: 140MG -5.6ML Q 15 DAYS IV DRIP
     Route: 041
     Dates: start: 20100312, end: 20100325
  2. LAPATINIB - TYKERB- 900MG/M2/DOSE GSK [Suspect]
     Indication: EPENDYMOMA
     Dosage: 625 MG -2.5 TABLETS BID PO
     Route: 048
     Dates: start: 20100312, end: 20100404

REACTIONS (6)
  - APNOEA [None]
  - ATAXIA [None]
  - CHOKING [None]
  - DISEASE PROGRESSION [None]
  - DYSPNOEA [None]
  - EPENDYMOMA [None]
